FAERS Safety Report 10902033 (Version 2)
Quarter: 2015Q1

REPORT INFORMATION
  Report Type: Spontaneous
  Country: GB (occurrence: GB)
  Receive Date: 20150310
  Receipt Date: 20150310
  Transmission Date: 20150721
  Serious: Yes (Death, Hospitalization, Other)
  Sender: FDA-Public Use
  Company Number: PHHY2015GB024798

PATIENT
  Age: 31 Year
  Sex: Female

DRUGS (5)
  1. IBUPROFEN. [Suspect]
     Active Substance: IBUPROFEN
     Indication: EAR PAIN
     Dosage: (DOUBLE DOSE)
     Route: 065
  2. PARACETAMOL [Suspect]
     Active Substance: ACETAMINOPHEN
     Indication: EAR PAIN
     Dosage: 2 DF, Q2H (2 TABLETS EVERY TWO HOURS OVER A 20HR PERIOD, MORE THAN TWICE OF RECOMMENDED DOSE. TOOK)
     Route: 048
     Dates: start: 201410
  3. ZOPICLONE [Suspect]
     Active Substance: ZOPICLONE
     Indication: ABDOMINAL PAIN
     Dosage: DOUBLE DOSE
     Route: 065
  4. ZOPICLONE [Suspect]
     Active Substance: ZOPICLONE
     Indication: SLEEP DISORDER
  5. OXYCODONE [Concomitant]
     Active Substance: OXYCODONE
     Indication: EAR PAIN
     Route: 065

REACTIONS (3)
  - Lung disorder [Fatal]
  - Hepatic congestion [Not Recovered/Not Resolved]
  - Overdose [Fatal]
